FAERS Safety Report 5468615-X (Version None)
Quarter: 2007Q3

REPORT INFORMATION
  Report Type: 
  Country: None (occurrence: None)
  Receive Date: 20070926
  Receipt Date: 20070919
  Transmission Date: 20080115
  Serious: Yes (Hospitalization)
  Sender: FDA-Public Use
  Company Number: AT-BRACCO-BRO-012093

PATIENT
  Sex: Male
  Weight: 100 kg

DRUGS (1)
  1. MULTIHANCE [Suspect]
     Indication: NUCLEAR MAGNETIC RESONANCE IMAGING BRAIN
     Route: 042
     Dates: start: 20070908, end: 20070908

REACTIONS (2)
  - CIRCULATORY COLLAPSE [None]
  - PULMONARY OEDEMA [None]
